FAERS Safety Report 9085620 (Version 1)
Quarter: 2013Q1

REPORT INFORMATION
  Report Type: Spontaneous
  Country: US (occurrence: US)
  Receive Date: 20130131
  Receipt Date: 20130131
  Transmission Date: 20140127
  Serious: No
  Sender: FDA-Public Use
  Company Number: US-ABBOTT-12P-163-0997957-00

PATIENT
  Sex: Female
  Weight: 70.37 kg

DRUGS (3)
  1. HUMIRA [Suspect]
     Indication: COELIAC DISEASE
     Dates: start: 201205
  2. NASONEX [Concomitant]
     Indication: HYPERSENSITIVITY
  3. NUVIGIL [Concomitant]
     Indication: HYPERSOMNIA

REACTIONS (2)
  - Off label use [Not Recovered/Not Resolved]
  - Device malfunction [Unknown]
